FAERS Safety Report 7263536-4 (Version None)
Quarter: 2011Q1

REPORT INFORMATION
  Report Type: 
  Country: None (occurrence: None)
  Receive Date: 20110130
  Receipt Date: 20101026
  Transmission Date: 20110831
  Serious: No
  Sender: FDA-Public Use
  Company Number: US-ABBOTT-10P-163-0681890-00

PATIENT
  Sex: Female
  Weight: 17.706 kg

DRUGS (4)
  1. DILATING DROPS [Concomitant]
     Indication: UVEITIS
     Route: 031
  2. HUMIRA [Suspect]
     Indication: RHEUMATOID ARTHRITIS
     Dates: start: 20090301
  3. HUMIRA [Suspect]
     Indication: UVEITIS
  4. PRED FORTE [Concomitant]
     Indication: UVEITIS
     Route: 031

REACTIONS (3)
  - VISUAL IMPAIRMENT [None]
  - UNEVALUABLE EVENT [None]
  - UVEITIS [None]
